FAERS Safety Report 4492696-3 (Version None)
Quarter: 2004Q4

REPORT INFORMATION
  Report Type: 
  Country: None (occurrence: None)
  Receive Date: 20041028
  Receipt Date: 20041018
  Transmission Date: 20050328
  Serious: Yes (Other)
  Sender: FDA-Public Use
  Company Number: 601588

PATIENT
  Age: 6 Year
  Sex: Male
  Weight: 33 kg

DRUGS (1)
  1. ADVATE (ANTIHEMOPHILIC FACTOR (RECOMBINANT), PLASMA/ ALBUMIN FREE METH [Suspect]
     Dosage: 1000 IU; INTRAVENOUS
     Route: 042
     Dates: start: 20040621

REACTIONS (1)
  - LABORATORY TEST ABNORMAL [None]
